FAERS Safety Report 4915110-X (Version None)
Quarter: 2006Q1

REPORT INFORMATION
  Report Type: 
  Country: None (occurrence: None)
  Receive Date: 20060215
  Receipt Date: 20060215
  Transmission Date: 20060701
  Serious: Yes (Other)
  Sender: FDA-Public Use
  Company Number: None

PATIENT
  Age: 35 Year
  Sex: Male
  Weight: 128.368 kg

DRUGS (1)
  1. ACIPHEX [Suspect]
     Indication: GASTRIC ULCER
     Dosage: 1 TABLET DAILY BY MOUTH
     Route: 048
     Dates: start: 20060109, end: 20060202

REACTIONS (3)
  - ABDOMINAL PAIN [None]
  - BURNING SENSATION [None]
  - DYSPEPSIA [None]
